FAERS Safety Report 26053459 (Version 1)
Quarter: 2025Q4

REPORT INFORMATION
  Report Type: Spontaneous
  Country: US (occurrence: None)
  Receive Date: 20251116
  Receipt Date: 20251116
  Transmission Date: 20260118
  Serious: Yes (Other)
  Sender: FDA-CTU
  Company Number: None

PATIENT
  Age: 82 Year
  Sex: Female
  Weight: 67.05 kg

DRUGS (7)
  1. ATORVASTATIN [Suspect]
     Active Substance: ATORVASTATIN
     Indication: Blood cholesterol increased
     Dates: start: 20211201, end: 20251023
  2. METOPROLOL [Concomitant]
     Active Substance: METOPROLOL
  3. ELIQUIS [Concomitant]
     Active Substance: APIXABAN
  4. ASPIRIN [Concomitant]
     Active Substance: ASPIRIN
  5. ENTESTO [Concomitant]
  6. TORSEMIDE [Concomitant]
     Active Substance: TORSEMIDE
  7. VIT C + D [Concomitant]

REACTIONS (8)
  - Abdominal distension [None]
  - Angioedema [None]
  - Jaundice [None]
  - Cough [None]
  - Pain in extremity [None]
  - Muscle tightness [None]
  - Nausea [None]
  - Vomiting [None]

NARRATIVE: CASE EVENT DATE: 20251018
